FAERS Safety Report 23073582 (Version 1)
Quarter: 2023Q4

REPORT INFORMATION
  Report Type: Spontaneous
  Country: FR (occurrence: FR)
  Receive Date: 20231017
  Receipt Date: 20231017
  Transmission Date: 20240109
  Serious: Yes (Death, Other)
  Sender: FDA-Public Use
  Company Number: FR-EMA-DD-20190510-faizan_m-112225

PATIENT
  Age: 42 Year
  Sex: Male
  Weight: 88 kg

DRUGS (6)
  1. ROSUVASTATIN [Suspect]
     Active Substance: ROSUVASTATIN
     Indication: Dyslipidaemia
     Dosage: UNK UNK,UNK
     Route: 048
     Dates: start: 201012
  2. PERINDOPRIL [Suspect]
     Active Substance: PERINDOPRIL
     Indication: Hypertension
     Dosage: UNK UNK,UNK
     Route: 048
     Dates: start: 20110128
  3. OMEPRAZOLE [Suspect]
     Active Substance: OMEPRAZOLE
     Indication: Prophylaxis against gastrointestinal ulcer
     Dosage: 20 MG,QD
     Route: 048
     Dates: start: 201012
  4. PLAVIX [Suspect]
     Active Substance: CLOPIDOGREL BISULFATE
     Indication: Vascular stent insertion
     Dosage: UNK UNK,UNK
     Route: 048
     Dates: start: 20110112
  5. KARDEGIC [Suspect]
     Active Substance: ASPIRIN DL-LYSINE
     Indication: Vascular stent insertion
     Dosage: UNK UNK,QD
     Route: 048
     Dates: start: 201012
  6. ATENOLOL [Suspect]
     Active Substance: ATENOLOL
     Indication: Prophylaxis
     Dosage: 100 MG,QD
     Route: 048
     Dates: start: 20110112

REACTIONS (2)
  - Haemorrhagic stroke [Fatal]
  - Cerebral haemorrhage [Fatal]

NARRATIVE: CASE EVENT DATE: 20110731
